FAERS Safety Report 5907826-3 (Version None)
Quarter: 2008Q4

REPORT INFORMATION
  Report Type: 
  Country: None (occurrence: None)
  Receive Date: 20081003
  Receipt Date: 20080922
  Transmission Date: 20090506
  Serious: Yes (Hospitalization)
  Sender: FDA-Public Use
  Company Number: ES-PFIZER INC-2008079463

PATIENT
  Age: 80 Year
  Sex: Female

DRUGS (12)
  1. ZITHROMAX [Suspect]
     Indication: RESPIRATORY TRACT INFECTION
     Dosage: DAILY DOSE:500MG
     Route: 048
     Dates: start: 20080526, end: 20080602
  2. OMEPRAZOLE [Concomitant]
     Route: 048
     Dates: start: 20080301
  3. COLISTIN SULFATE [Concomitant]
     Route: 055
     Dates: start: 20080101, end: 20080531
  4. DIGOXIN [Concomitant]
     Dosage: DAILY DOSE:.25MG
     Route: 048
     Dates: start: 20080301
  5. ATROVENT [Concomitant]
     Dosage: DAILY DOSE:20MCG
     Route: 055
     Dates: start: 20080301
  6. BISOLVON [Concomitant]
     Dosage: TEXT:10 MG/5 ML
     Route: 048
     Dates: start: 20060523, end: 20080605
  7. ASCORBIC ACID [Concomitant]
     Route: 048
     Dates: start: 20080301
  8. POTASSIUM BICARBONATE [Concomitant]
     Route: 048
     Dates: start: 20080301
  9. SEGURIL [Concomitant]
     Dosage: DAILY DOSE:40MG
     Route: 048
     Dates: start: 20080301
  10. SERETIDE [Concomitant]
     Dosage: TEXT:25/250 MCG
     Route: 055
     Dates: start: 20080301
  11. SERETIDE [Concomitant]
     Dosage: TEXT:25/250 MCG
     Route: 055
     Dates: start: 20080301
  12. VENTOLIN [Concomitant]
     Dosage: DAILY DOSE:100MCG
     Route: 055
     Dates: start: 20080301

REACTIONS (2)
  - CONFUSIONAL STATE [None]
  - HALLUCINATION [None]
